FAERS Safety Report 19909757 (Version 2)
Quarter: 2021Q4

REPORT INFORMATION
  Report Type: Spontaneous
  Country: US (occurrence: US)
  Receive Date: 20211003
  Receipt Date: 20211122
  Transmission Date: 20220303
  Serious: Yes (Other)
  Sender: FDA-Public Use
  Company Number: US-JNJFOC-20210952955

PATIENT
  Age: 7 Decade
  Sex: Female

DRUGS (1)
  1. ELMIRON [Suspect]
     Active Substance: PENTOSAN POLYSULFATE SODIUM
     Indication: Cystitis interstitial
     Route: 048
     Dates: start: 1999, end: 2019

REACTIONS (3)
  - Macular degeneration [Not Recovered/Not Resolved]
  - Vitreous detachment [Unknown]
  - Retinal pigmentation [Unknown]

NARRATIVE: CASE EVENT DATE: 20170101
